FAERS Safety Report 25269389 (Version 1)
Quarter: 2025Q2

REPORT INFORMATION
  Report Type: Spontaneous
  Country: CN (occurrence: CN)
  Receive Date: 20250505
  Receipt Date: 20250505
  Transmission Date: 20250717
  Serious: Yes (Death, Other)
  Sender: PFIZER
  Company Number: CN-PFIZER INC-PV202500053097

PATIENT
  Age: 81 Year
  Sex: Male

DRUGS (3)
  1. CEFOPERAZONE SODIUM [Suspect]
     Active Substance: CEFOPERAZONE SODIUM
     Indication: Atypical mycobacterial infection
  2. MEROPENEM [Suspect]
     Active Substance: MEROPENEM
     Indication: Atypical mycobacterial infection
     Dosage: 0.5 G, 4X/DAY
  3. SULBACTAM SODIUM [Suspect]
     Active Substance: SULBACTAM SODIUM
     Indication: Atypical mycobacterial infection
     Dosage: 2 G, 2X/DAY

REACTIONS (2)
  - Drug ineffective for unapproved indication [Fatal]
  - Off label use [Unknown]
